FAERS Safety Report 14481249 (Version 1)
Quarter: 2018Q1

REPORT INFORMATION
  Report Type: Report from Study
  Country: None (occurrence: IT)
  Receive Date: 20180202
  Receipt Date: 20180202
  Transmission Date: 20180509
  Serious: Yes (Death)
  Sender: FDA-Public Use
  Company Number: IT-ABBVIE-18K-083-2245293-00

PATIENT
  Age: 62 Year
  Sex: Male

DRUGS (1)
  1. DUODOPA [Suspect]
     Active Substance: CARBIDOPA\LEVODOPA
     Indication: PARKINSON^S DISEASE
     Dosage: MD 7.5+3??CR 4.0??RD 4.0
     Route: 050
     Dates: start: 20101129, end: 20180129

REACTIONS (3)
  - Cardiac arrest [Fatal]
  - Intestinal obstruction [Fatal]
  - Constipation [Fatal]

NARRATIVE: CASE EVENT DATE: 20180129
